FAERS Safety Report 10108787 (Version 1)
Quarter: 2014Q2

REPORT INFORMATION
  Report Type: Spontaneous
  Country: FR (occurrence: FR)
  Receive Date: 20140425
  Receipt Date: 20140425
  Transmission Date: 20141212
  Serious: Yes (Death)
  Sender: FDA-Public Use
  Company Number: FR-009507513-1404FRA010028

PATIENT
  Sex: Female

DRUGS (4)
  1. EMEND [Suspect]
     Indication: VOMITING
     Dosage: 125 MG, CYCLICAL
     Route: 048
     Dates: start: 2011, end: 201312
  2. EMEND [Suspect]
     Indication: NAUSEA
     Dosage: 80 MG, CYCLICAL
     Route: 048
  3. EMEND [Suspect]
     Dosage: 80 MG, CYCLICAL
     Route: 048
  4. CHEMOTHERAPY [Concomitant]

REACTIONS (1)
  - Disease progression [Fatal]
